FAERS Safety Report 8926015 (Version 1)
Quarter: 2012Q4

REPORT INFORMATION
  Report Type: 
  Country: US (occurrence: US)
  Receive Date: 20121126
  Receipt Date: 20121126
  Transmission Date: 20130627
  Serious: Yes (Other)
  Sender: FDA-Public Use
  Company Number: US-BAYER-2012-122499

PATIENT

DRUGS (5)
  1. ALEVE CAPLET/TABLET,MIDOL EXTENDED RELIEF CAPLET [Suspect]
     Indication: PAIN RELIEF
  2. ONDANSETRON [Concomitant]
  3. MILK OF MAGNESIA [Concomitant]
  4. HYPNOTICS AND SEDATIVES [Concomitant]
  5. IBUPROFEN [Concomitant]

REACTIONS (13)
  - Balance disorder [None]
  - Nausea [None]
  - Weight decreased [None]
  - Oral pain [None]
  - Oropharyngeal pain [None]
  - Vomiting [None]
  - Pain [None]
  - Retching [None]
  - Choking [None]
  - Cough [None]
  - Productive cough [None]
  - Gastric disorder [None]
  - Drug effect incomplete [None]
